FAERS Safety Report 11079906 (Version 1)
Quarter: 2015Q2

REPORT INFORMATION
  Report Type: Spontaneous
  Country: US (occurrence: US)
  Receive Date: 20150430
  Receipt Date: 20150430
  Transmission Date: 20150821
  Serious: No
  Sender: FDA-Public Use
  Company Number: US-009507513-1504USA015038

PATIENT
  Age: 33 Year
  Sex: Female

DRUGS (1)
  1. NEXPLANON [Suspect]
     Active Substance: ETONOGESTREL
     Indication: CONTRACEPTION
     Dosage: 1 ROD/1 INSERTION
     Route: 059
     Dates: start: 20140712, end: 20150202

REACTIONS (3)
  - Muscle spasms [Unknown]
  - Alopecia [Unknown]
  - Dizziness [Unknown]

NARRATIVE: CASE EVENT DATE: 201407
